FAERS Safety Report 23370360 (Version 1)
Quarter: 2024Q1

REPORT INFORMATION
  Report Type: Spontaneous
  Country: US (occurrence: US)
  Receive Date: 20240105
  Receipt Date: 20240105
  Transmission Date: 20240409
  Serious: No
  Sender: FDA-Public Use
  Company Number: US-SA-SAC20231228000263

PATIENT
  Sex: Female
  Weight: 90.718 kg

DRUGS (1)
  1. DUPIXENT [Suspect]
     Active Substance: DUPILUMAB
     Indication: Product used for unknown indication
     Dosage: 300 MG INJECT UNDER THE SKIN \FREQUENCY: EVERY 2 WEEKS
     Route: 058

REACTIONS (1)
  - Skin disorder [Unknown]
